FAERS Safety Report 14644858 (Version 2)
Quarter: 2018Q3

REPORT INFORMATION
  Report Type: Report from Study
  Country: US (occurrence: US)
  Receive Date: 20180315
  Receipt Date: 20180713
  Transmission Date: 20181010
  Serious: Yes (Other)
  Sender: FDA-Public Use
  Company Number: PHEH2018US010309

PATIENT
  Age: 52 Year
  Sex: Female

DRUGS (1)
  1. GILENYA [Suspect]
     Active Substance: FINGOLIMOD HYDROCHLORIDE
     Indication: MULTIPLE SCLEROSIS
     Dosage: 0.5 MG, QD
     Route: 048
     Dates: start: 20171205

REACTIONS (7)
  - Multiple sclerosis [Not Recovered/Not Resolved]
  - Optic nerve disorder [Unknown]
  - Discomfort [Unknown]
  - Back pain [Unknown]
  - Lumbar spinal stenosis [Not Recovered/Not Resolved]
  - Arthritis [Recovering/Resolving]
  - Chest discomfort [Unknown]

NARRATIVE: CASE EVENT DATE: 20180101
